FAERS Safety Report 7529161-2 (Version None)
Quarter: 2011Q2

REPORT INFORMATION
  Report Type: 
  Country: None (occurrence: None)
  Receive Date: 20110607
  Receipt Date: 20050328
  Transmission Date: 20111010
  Serious: Yes (Other)
  Sender: FDA-Public Use
  Company Number: PHBS2004CA09474

PATIENT
  Sex: Male

DRUGS (9)
  1. CALCIUM CARBONATE [Concomitant]
     Dosage: 500 MG, QD
  2. LACTULOSE [Concomitant]
     Dates: start: 20040629
  3. ANUSOL HC [Concomitant]
     Dosage: UNK
     Dates: start: 20040710
  4. ZOLADEX [Concomitant]
     Indication: PROSTATE CANCER
     Dosage: 10.8 MG, EVERY 3 MONTHS
     Route: 058
  5. CASODEX [Concomitant]
     Dates: start: 20040228, end: 20040308
  6. VITAMIN D [Concomitant]
     Dosage: 400 IU, QD
  7. ATIVAN [Concomitant]
     Dosage: UNK
     Dates: start: 20040629
  8. ZOLEDRONIC ACID [Suspect]
     Indication: OSTEOPOROSIS PROPHYLAXIS
     Dosage: 4 MG, EVERY 3 MONTH
     Route: 042
     Dates: start: 20040325
  9. VITAMIN E [Concomitant]
     Dates: start: 19950101

REACTIONS (1)
  - GOUT [None]
